FAERS Safety Report 11750271 (Version 1)
Quarter: 2015Q4

REPORT INFORMATION
  Report Type: Spontaneous
  Country: US (occurrence: None)
  Receive Date: 20151117
  Receipt Date: 20151117
  Transmission Date: 20160304
  Serious: Yes (Hospitalization)
  Sender: FDA-Public Use
  Company Number: None

PATIENT
  Age: 45 Year
  Sex: Male
  Weight: 96.8 kg

DRUGS (2)
  1. CLINDAMYCIN [Suspect]
     Active Substance: CLINDAMYCIN\CLINDAMYCIN PHOSPHATE
     Indication: TOOTH INFECTION
     Route: 048
     Dates: start: 20150919, end: 20150929
  2. CEFTRIAXONE. [Suspect]
     Active Substance: CEFTRIAXONE
     Indication: TOOTH INFECTION
     Route: 030
     Dates: start: 20150919, end: 20150919

REACTIONS (5)
  - Colitis [None]
  - Diarrhoea [None]
  - Abdominal pain [None]
  - Constipation [None]
  - Clostridium difficile infection [None]

NARRATIVE: CASE EVENT DATE: 20150924
